FAERS Safety Report 7808499-5 (Version None)
Quarter: 2011Q4

REPORT INFORMATION
  Report Type: 
  Country: None (occurrence: None)
  Receive Date: 20111011
  Receipt Date: 20111011
  Transmission Date: 20120403
  Serious: Yes (Hospitalization)
  Sender: FDA-Public Use
  Company Number: None

PATIENT
  Sex: Female
  Weight: 57.8 kg

DRUGS (2)
  1. TRAZODONE HCL [Concomitant]
  2. TEMOZOLOMIDE [Suspect]
     Dosage: 2400 MG
     Dates: end: 20101026

REACTIONS (6)
  - SOMNOLENCE [None]
  - NUCLEAR MAGNETIC RESONANCE IMAGING BRAIN ABNORMAL [None]
  - CEREBRAL HAEMATOMA [None]
  - CONFUSIONAL STATE [None]
  - ASTHENIA [None]
  - CONDITION AGGRAVATED [None]
